FAERS Safety Report 7897667-2 (Version None)
Quarter: 2011Q4

REPORT INFORMATION
  Report Type: 
  Country: None (occurrence: None)
  Receive Date: 20111107
  Receipt Date: 20111031
  Transmission Date: 20120403
  Serious: Yes (Other)
  Sender: FDA-Public Use
  Company Number: GB-UCBSA-043144

PATIENT
  Age: 22 Year
  Sex: Male

DRUGS (2)
  1. LEVETIRACETAM [Suspect]
     Indication: PARTIAL SEIZURES
     Route: 048
     Dates: start: 20080213
  2. VITAMIN D [Concomitant]
     Indication: VITAMIN D DEFICIENCY
     Route: 048
     Dates: start: 20070101

REACTIONS (1)
  - BONE INFARCTION [None]
